FAERS Safety Report 4753574-5 (Version None)
Quarter: 2005Q3

REPORT INFORMATION
  Report Type: 
  Country: None (occurrence: None)
  Receive Date: 20050826
  Receipt Date: 20050816
  Transmission Date: 20060218
  Serious: Yes (Hospitalization)
  Sender: FDA-Public Use
  Company Number: GB-JNJFOC-20050804314

PATIENT
  Age: 41 Year
  Sex: Male

DRUGS (6)
  1. RISPERDAL [Suspect]
     Dosage: RESTARTED ON AN UNKNOWN DATE  DOSE REPORTED AS 1-5MG DAILY PRN
  2. RISPERDAL [Suspect]
     Indication: DRUG USE FOR UNKNOWN INDICATION
     Dosage: DOSE REPORTED AS 1-5MG DAILY PRN
  3. EPILIM [Suspect]
     Indication: DRUG USE FOR UNKNOWN INDICATION
     Dosage: DOSE REPORTED AS 500MG EPILIM EC TDS AND 100MG EPLIM CRUSHABLE ON
  4. METHADONE HCL [Concomitant]
  5. OLANZAPINE [Concomitant]
  6. PAROXETINE [Concomitant]

REACTIONS (4)
  - CONFUSIONAL STATE [None]
  - DRUG WITHDRAWAL SYNDROME [None]
  - HALLUCINATION [None]
  - SOMNOLENCE [None]
